FAERS Safety Report 14986613 (Version 1)
Quarter: 2018Q2

REPORT INFORMATION
  Report Type: Spontaneous
  Country: US (occurrence: US)
  Receive Date: 20180608
  Receipt Date: 20180608
  Transmission Date: 20180711
  Serious: No
  Sender: FDA-Public Use
  Company Number: US-IPSEN BIOPHARMACEUTICALS, INC.-2018-05376

PATIENT
  Sex: Female
  Weight: 75 kg

DRUGS (14)
  1. METFORMIN [Concomitant]
     Active Substance: METFORMIN HYDROCHLORIDE
  2. HYDROCHLOROTHIAZIDE. [Concomitant]
     Active Substance: HYDROCHLOROTHIAZIDE
  3. LOSARTAN. [Concomitant]
     Active Substance: LOSARTAN
  4. ATENOLOL. [Concomitant]
     Active Substance: ATENOLOL
  5. NEXIUM [Concomitant]
     Active Substance: ESOMEPRAZOLE MAGNESIUM
  6. RANITIDINE. [Concomitant]
     Active Substance: RANITIDINE
  7. BIOTIN [Concomitant]
     Active Substance: BIOTIN
  8. ATORVASTATIN [Concomitant]
     Active Substance: ATORVASTATIN
  9. POTASSIUM CITRATE. [Concomitant]
     Active Substance: POTASSIUM CITRATE
  10. MULTIVITAMIN [Concomitant]
     Active Substance: VITAMINS
  11. ROGAINE [Concomitant]
     Active Substance: MINOXIDIL
  12. JARDIANCE [Concomitant]
     Active Substance: EMPAGLIFLOZIN
  13. JANUVIA [Concomitant]
     Active Substance: SITAGLIPTIN PHOSPHATE
  14. SOMATULINE DEPOT [Suspect]
     Active Substance: LANREOTIDE ACETATE
     Indication: ACROMEGALY
     Dosage: 90MG
     Route: 058
     Dates: start: 20171018

REACTIONS (2)
  - Dry skin [Not Recovered/Not Resolved]
  - Alopecia [Not Recovered/Not Resolved]
